FAERS Safety Report 14022272 (Version 1)
Quarter: 2017Q3

REPORT INFORMATION
  Report Type: Spontaneous
  Country: US (occurrence: None)
  Receive Date: 20170929
  Receipt Date: 20170929
  Transmission Date: 20171128
  Serious: Yes (Hospitalization)
  Sender: FDA-Public Use
  Company Number: None

PATIENT
  Age: 51 Year
  Sex: Female
  Weight: 59.9 kg

DRUGS (2)
  1. LENALIDOMIDE [Suspect]
     Active Substance: LENALIDOMIDE
     Dates: end: 20170925
  2. VELCADE [Suspect]
     Active Substance: BORTEZOMIB
     Dates: end: 20170922

REACTIONS (1)
  - Cellulitis [None]

NARRATIVE: CASE EVENT DATE: 20170925
